FAERS Safety Report 25249599 (Version 1)
Quarter: 2025Q2

REPORT INFORMATION
  Report Type: Spontaneous
  Country: US (occurrence: US)
  Receive Date: 20250429
  Receipt Date: 20250429
  Transmission Date: 20250716
  Serious: Yes (Life-Threatening, Hospitalization)
  Sender: EPIC PHARM
  Company Number: US-EPICPHARMA-US-2025EPCLIT00498

PATIENT
  Age: 32 Year
  Sex: Male

DRUGS (2)
  1. MIDAZOLAM HYDROCHLORIDE [Suspect]
     Active Substance: MIDAZOLAM HYDROCHLORIDE
     Indication: Sedation
     Route: 065
  2. PHENOBARBITAL [Concomitant]
     Active Substance: PHENOBARBITAL
     Indication: Product used for unknown indication
     Route: 048

REACTIONS (2)
  - Agitation [Unknown]
  - Withdrawal syndrome [Unknown]
